FAERS Safety Report 8484974-8 (Version None)
Quarter: 2012Q2

REPORT INFORMATION
  Report Type: 
  Country: None (occurrence: None)
  Receive Date: 20120625
  Receipt Date: 20120614
  Transmission Date: 20120825
  Serious: Yes (Other)
  Sender: FDA-Public Use
  Company Number: AUR-APL-2012-02691

PATIENT
  Age: 52 Year
  Sex: Female

DRUGS (11)
  1. LISINOPRIL [Suspect]
     Indication: PRODUCT USED FOR UNKNOWN INDICATION
  2. METFORMIN HCL [Suspect]
     Indication: PRODUCT USED FOR UNKNOWN INDICATION
  3. SPIRONOLACTONE AND HYDROCHLOROTHIAZIDE [Suspect]
     Indication: PRODUCT USED FOR UNKNOWN INDICATION
  4. TEMAZEPAM [Suspect]
     Indication: PRODUCT USED FOR UNKNOWN INDICATION
  5. PLAVIX [Suspect]
     Indication: PRODUCT USED FOR UNKNOWN INDICATION
  6. LIRAGLUTIDE (LIRAGLUTIDE) [Suspect]
     Indication: PRODUCT USED FOR UNKNOWN INDICATION
  7. PROTONIX [Suspect]
     Indication: PRODUCT USED FOR UNKNOWN INDICATION
     Dosage: 80 MG (40 MG,2 IN 1 D),ORAL
     Route: 048
  8. TOPROL-XL [Suspect]
     Indication: PRODUCT USED FOR UNKNOWN INDICATION
  9. CYMBALTA [Suspect]
     Indication: PRODUCT USED FOR UNKNOWN INDICATION
  10. ISOSORBIDE DINITRATE [Suspect]
     Indication: PRODUCT USED FOR UNKNOWN INDICATION
  11. LIPITOR [Suspect]
     Indication: PRODUCT USED FOR UNKNOWN INDICATION

REACTIONS (3)
  - CEREBROVASCULAR ACCIDENT [None]
  - MYOCARDIAL INFARCTION [None]
  - LOSS OF EMPLOYMENT [None]
